FAERS Safety Report 13826138 (Version 1)
Quarter: 2017Q3

REPORT INFORMATION
  Report Type: Spontaneous
  Country: GB (occurrence: GB)
  Receive Date: 20170802
  Receipt Date: 20170802
  Transmission Date: 20171127
  Serious: Yes (Death, Other)
  Sender: FDA-Public Use
  Company Number: GB-MYLANLABS-2017M1046516

PATIENT

DRUGS (12)
  1. FLUTAMIDE. [Suspect]
     Active Substance: FLUTAMIDE
     Indication: PRODUCT USED FOR UNKNOWN INDICATION
     Dates: start: 20170331, end: 20170628
  2. AMOXICILLIN. [Concomitant]
     Active Substance: AMOXICILLIN
     Route: 048
     Dates: start: 20170627, end: 20170629
  3. BENDROFLUMETHIAZIDE [Concomitant]
     Active Substance: BENDROFLUMETHIAZIDE
     Dosage: 2.5 MG, QD
     Dates: end: 20170628
  4. RAMIPRIL. [Concomitant]
     Active Substance: RAMIPRIL
  5. PREGABALIN. [Concomitant]
     Active Substance: PREGABALIN
     Dosage: 150MG MORNING, 300MG AT NIGHT
  6. BECLOMETASONE [Concomitant]
     Active Substance: BECLOMETHASONE DIPROPIONATE
     Dosage: 100MICROGRAMS/DOSE BREATH ACTUATED^INHALER CFC FREE
     Route: 055
  7. BECLOMETASONE [Concomitant]
     Active Substance: BECLOMETHASONE DIPROPIONATE
     Route: 045
  8. COCODAMOL [Concomitant]
     Active Substance: ACETAMINOPHEN\CODEINE PHOSPHATE
     Dosage: QDS PRN
  9. SALBUTAMOL [Concomitant]
     Active Substance: ALBUTEROL
     Dosage: 1 TO 2 PUFFS PRN
     Route: 055
  10. LUPRON DEPOT [Concomitant]
     Active Substance: LEUPROLIDE ACETATE
     Indication: PROSTATE CANCER
     Dosage: LAST HAD IN APRIL 2017
  11. IBUPROFEN. [Concomitant]
     Active Substance: IBUPROFEN
  12. ATORVASTATIN [Concomitant]
     Active Substance: ATORVASTATIN
     Dosage: AT NIGHT
     Route: 048
     Dates: end: 20170628

REACTIONS (2)
  - Hepatotoxicity [Not Recovered/Not Resolved]
  - Respiratory arrest [Fatal]

NARRATIVE: CASE EVENT DATE: 20170628
